FAERS Safety Report 12869782 (Version 3)
Quarter: 2017Q1

REPORT INFORMATION
  Report Type: Report from Study
  Country: US (occurrence: US)
  Receive Date: 20161020
  Receipt Date: 20170124
  Transmission Date: 20170428
  Serious: No
  Sender: FDA-Public Use
  Company Number: US-AMGEN-USASL2016116628

PATIENT
  Age: 70 Year
  Sex: Female

DRUGS (1)
  1. REPATHA [Suspect]
     Active Substance: EVOLOCUMAB
     Indication: BLOOD CHOLESTEROL ABNORMAL
     Dosage: 140 MG, Q2WK
     Route: 065
     Dates: start: 201602

REACTIONS (13)
  - Sinus disorder [Unknown]
  - Influenza like illness [Unknown]
  - Feeling abnormal [Unknown]
  - Rhinorrhoea [Unknown]
  - Back pain [Unknown]
  - Bronchitis chronic [Unknown]
  - Contusion [Unknown]
  - Nasal congestion [Unknown]
  - Oropharyngeal pain [Unknown]
  - Infection [Unknown]
  - Malaise [Not Recovered/Not Resolved]
  - Sinusitis [Unknown]
  - Injection site pain [Unknown]

NARRATIVE: CASE EVENT DATE: 201608
